FAERS Safety Report 20521084 (Version 1)
Quarter: 2022Q1

REPORT INFORMATION
  Report Type: Spontaneous
  Country: US (occurrence: US)
  Receive Date: 20220226
  Receipt Date: 20220226
  Transmission Date: 20220424
  Serious: No
  Sender: FDA-Public Use
  Company Number: US-UNITED THERAPEUTICS-UNT-2022-004271

PATIENT
  Sex: Male

DRUGS (3)
  1. TYVASO [Suspect]
     Active Substance: TREPROSTINIL
     Indication: Pulmonary arterial hypertension
     Dosage: UNK
     Dates: start: 202104
  2. TYVASO [Suspect]
     Active Substance: TREPROSTINIL
     Dosage: INCREASE BY 1 BREATH
  3. TYVASO [Suspect]
     Active Substance: TREPROSTINIL
     Dosage: 54 ?G, QID

REACTIONS (2)
  - Feeling abnormal [Unknown]
  - Device operational issue [Unknown]
